FAERS Safety Report 6540424-X (Version None)
Quarter: 2010Q1

REPORT INFORMATION
  Report Type: 
  Country: None (occurrence: None)
  Receive Date: 20100113
  Receipt Date: 20091217
  Transmission Date: 20100710
  Serious: Yes (Other)
  Sender: FDA-Public Use
  Company Number: 2009SP042342

PATIENT
  Age: 39 Year
  Sex: Female
  Weight: 62.5964 kg

DRUGS (2)
  1. NUVARING [Suspect]
     Indication: DRUG USE FOR UNKNOWN INDICATION
     Dates: start: 20010101
  2. TYLENOL [Concomitant]

REACTIONS (5)
  - BLOOD AMYLASE INCREASED [None]
  - NAUSEA [None]
  - PAIN IN EXTREMITY [None]
  - POLYMENORRHOEA [None]
  - VOMITING [None]
